FAERS Safety Report 6057300-1 (Version None)
Quarter: 2009Q1

REPORT INFORMATION
  Report Type: 
  Country: None (occurrence: None)
  Receive Date: 20090129
  Receipt Date: 20080818
  Transmission Date: 20090719
  Serious: No
  Sender: FDA-Public Use
  Company Number: A0743008A

PATIENT
  Age: 74 Year
  Sex: Female

DRUGS (3)
  1. BUPROPION HCL [Suspect]
     Route: 048
  2. NICODERM CQ [Suspect]
  3. NICODERM CQ [Suspect]
     Dates: start: 20080626

REACTIONS (2)
  - ANXIETY [None]
  - NICOTINE DEPENDENCE [None]
